FAERS Safety Report 7722824-5 (Version None)
Quarter: 2011Q3

REPORT INFORMATION
  Report Type: 
  Country: None (occurrence: None)
  Receive Date: 20110901
  Receipt Date: 20110826
  Transmission Date: 20111222
  Serious: No
  Sender: FDA-Public Use
  Company Number: US-BIOGENIDEC-2010BI042408

PATIENT
  Age: 58 Year
  Sex: Female

DRUGS (1)
  1. TYSABRI [Suspect]
     Indication: MULTIPLE SCLEROSIS
     Route: 042
     Dates: start: 20100624

REACTIONS (6)
  - HYPOAESTHESIA [None]
  - MEMORY IMPAIRMENT [None]
  - BALANCE DISORDER [None]
  - VISUAL IMPAIRMENT [None]
  - EYE DISORDER [None]
  - GAIT DISTURBANCE [None]
